FAERS Safety Report 9219767 (Version 2)
Quarter: 2013Q2

REPORT INFORMATION
  Report Type: Spontaneous
  Country: AT (occurrence: AT)
  Receive Date: 20130409
  Receipt Date: 20130412
  Transmission Date: 20140414
  Serious: Yes (Hospitalization)
  Sender: FDA-Public Use
  Company Number: AT-ROCHE-1208055

PATIENT
  Age: 45 Year
  Sex: Male
  Weight: 90 kg

DRUGS (5)
  1. ZELBORAF [Suspect]
     Indication: MALIGNANT MELANOMA
     Route: 048
     Dates: start: 20130321
  2. HYDAL [Concomitant]
     Route: 065
  3. SAROTEN [Concomitant]
     Route: 048
  4. PANTOLOC [Concomitant]
     Route: 048
  5. LACTULOSE [Concomitant]
     Dosage: EL
     Route: 048

REACTIONS (3)
  - General physical health deterioration [Unknown]
  - Oral disorder [Unknown]
  - Tongue blistering [Recovered/Resolved]
